FAERS Safety Report 14391318 (Version 1)
Quarter: 2018Q1

REPORT INFORMATION
  Report Type: Spontaneous
  Country: US (occurrence: US)
  Receive Date: 20180112
  Receipt Date: 20180112
  Transmission Date: 20180509
  Serious: Yes (Death)
  Sender: FDA-Public Use
  Company Number: None

PATIENT
  Age: 51 Year
  Sex: Male

DRUGS (10)
  1. SMZ-TMP [Concomitant]
     Active Substance: SULFAMETHOXAZOLE\TRIMETHOPRIM
  2. CEPHALEXIN. [Concomitant]
     Active Substance: CEPHALEXIN
  3. CAPECITABINE 500 MG [Suspect]
     Active Substance: CAPECITABINE
     Indication: COLON CANCER
     Dosage: FREQUENCY - BID X 14 DS
     Route: 048
     Dates: start: 20171030, end: 20171217
  4. FENTANYL. [Concomitant]
     Active Substance: FENTANYL
  5. ACYCLOVIR. [Concomitant]
     Active Substance: ACYCLOVIR
  6. AMOX/K CLAV [Concomitant]
     Active Substance: AMOXICILLIN\CLAVULANATE POTASSIUM
  7. BENZONATATE. [Concomitant]
     Active Substance: BENZONATATE
  8. PROMETHAZINE/CODEINE [Concomitant]
     Active Substance: CODEINE\PROMETHAZINE
  9. HYDROCO/APAP [Concomitant]
     Active Substance: ACETAMINOPHEN\HYDROCODONE
  10. LEVOFLOXACIN. [Concomitant]
     Active Substance: LEVOFLOXACIN

REACTIONS (1)
  - Death [None]

NARRATIVE: CASE EVENT DATE: 20171217
